FAERS Safety Report 22532200 (Version 1)
Quarter: 2023Q2

REPORT INFORMATION
  Report Type: Spontaneous
  Country: US (occurrence: US)
  Receive Date: 20230607
  Receipt Date: 20230607
  Transmission Date: 20230722
  Serious: Yes (Other)
  Sender: FDA-Public Use
  Company Number: US-NOVOPROD-1057235

PATIENT
  Age: 71 Year
  Sex: Female
  Weight: 87.528 kg

DRUGS (3)
  1. WEGOVY [Suspect]
     Active Substance: SEMAGLUTIDE
     Indication: Type 2 diabetes mellitus
     Dosage: 0.25MG
     Route: 058
     Dates: start: 20230303, end: 20230413
  2. OZEMPIC [Suspect]
     Active Substance: SEMAGLUTIDE
     Dosage: 0.25MG (DOSE DECREASED)
     Route: 058
     Dates: start: 20230421
  3. OZEMPIC [Suspect]
     Active Substance: SEMAGLUTIDE
     Indication: Type 2 diabetes mellitus
     Dosage: 1MG
     Route: 058
     Dates: start: 20230414, end: 20230420

REACTIONS (13)
  - Cardiac flutter [Unknown]
  - Muscle atrophy [Not Recovered/Not Resolved]
  - Depression [Not Recovered/Not Resolved]
  - Palpitations [Unknown]
  - Dizziness [Unknown]
  - Decreased appetite [Not Recovered/Not Resolved]
  - Constipation [Not Recovered/Not Resolved]
  - Nausea [Not Recovered/Not Resolved]
  - Abdominal pain upper [Not Recovered/Not Resolved]
  - Vomiting [Unknown]
  - Off label use [Recovered/Resolved]
  - Off label use [Recovered/Resolved]
  - Incorrect dose administered [Unknown]

NARRATIVE: CASE EVENT DATE: 20230101
